FAERS Safety Report 14158485 (Version 1)
Quarter: 2017Q4

REPORT INFORMATION
  Report Type: Spontaneous
  Country: US (occurrence: US)
  Receive Date: 20171103
  Receipt Date: 20171103
  Transmission Date: 20180321
  Serious: Yes (Other)
  Sender: FDA-Public Use
  Company Number: PHHY2017US157752

PATIENT
  Age: 11 Year
  Sex: Male

DRUGS (2)
  1. DEXAMETHASONE. [Suspect]
     Active Substance: DEXAMETHASONE
     Indication: BIPOLAR DISORDER
     Dosage: 40 MG/M2/DAY FOR 4 DAYS
     Route: 065
  2. RISPERIDONE. [Suspect]
     Active Substance: RISPERIDONE
     Indication: BIPOLAR DISORDER
     Route: 065

REACTIONS (4)
  - Immune thrombocytopenic purpura [Unknown]
  - Condition aggravated [Recovered/Resolved]
  - Bipolar disorder [Recovered/Resolved]
  - Affect lability [Recovered/Resolved]
